FAERS Safety Report 16157284 (Version 1)
Quarter: 2019Q2

REPORT INFORMATION
  Report Type: Spontaneous
  Country: US (occurrence: US)
  Receive Date: 20190404
  Receipt Date: 20190404
  Transmission Date: 20190711
  Serious: No
  Sender: FDA-Public Use
  Company Number: US-MYLANLABS-2019M1025704

PATIENT
  Sex: Male
  Weight: 129 kg

DRUGS (1)
  1. FENTANYL TRANSDERMAL SYSTEM [Suspect]
     Active Substance: FENTANYL
     Indication: PAIN
     Dosage: 25 MICROGRAM, Q3D
     Route: 062

REACTIONS (6)
  - Formication [Recovered/Resolved]
  - Feeling jittery [Recovered/Resolved]
  - Therapeutic product effect decreased [Unknown]
  - Withdrawal syndrome [Recovered/Resolved]
  - Nervousness [Unknown]
  - Hyperhidrosis [Recovered/Resolved]
